FAERS Safety Report 18217767 (Version 2)
Quarter: 2020Q3

REPORT INFORMATION
  Report Type: Spontaneous
  Country: TR (occurrence: TR)
  Receive Date: 20200901
  Receipt Date: 20200918
  Transmission Date: 20201103
  Serious: Yes (Hospitalization)
  Sender: FDA-Public Use
  Company Number: TR-MACLEODS PHARMACEUTICALS US LTD-MAC2020027835

PATIENT

DRUGS (1)
  1. LIDOCAINE. [Suspect]
     Active Substance: LIDOCAINE
     Indication: LOCAL ANAESTHESIA
     Dosage: 240 MILLIGRAM, SINGLE,3ML(60MG) NECK 4ML (80MG) LEFTHAND, 5ML(100MG)  LOWER EXTREMITY 2% INJECTION
     Route: 058

REACTIONS (4)
  - Dysphonia [Recovered/Resolved]
  - Injection site oedema [Recovered/Resolved]
  - Dyspnoea [Recovered/Resolved]
  - Sinus tachycardia [Recovered/Resolved]
